FAERS Safety Report 7287188-2 (Version None)
Quarter: 2011Q1

REPORT INFORMATION
  Report Type: 
  Country: None (occurrence: None)
  Receive Date: 20110211
  Receipt Date: 20110131
  Transmission Date: 20110831
  Serious: Yes (Hospitalization)
  Sender: FDA-Public Use
  Company Number: JP-ROCHE-749379

PATIENT
  Sex: Male
  Weight: 77 kg

DRUGS (20)
  1. PREDNISOLONE [Concomitant]
     Route: 048
     Dates: start: 20101225
  2. PARIET [Concomitant]
     Route: 048
  3. TRYPTANOL [Concomitant]
     Route: 048
  4. ACTONEL [Concomitant]
     Route: 048
  5. MUCOSTA [Concomitant]
     Route: 048
  6. PREDNISOLONE [Concomitant]
     Route: 048
     Dates: start: 20101021, end: 20101103
  7. PREDNISOLONE [Concomitant]
     Dosage: DOSE FROM: PERORAL AGENT
     Route: 048
     Dates: end: 20100826
  8. ACTEMRA [Suspect]
     Route: 042
     Dates: start: 20101104, end: 20101202
  9. BAKTAR [Concomitant]
     Route: 048
  10. TACROLIMUS [Concomitant]
     Indication: STILL'S DISEASE ADULT ONSET
     Route: 048
     Dates: end: 20101104
  11. METHYCOBAL [Concomitant]
     Route: 048
  12. PREDNISOLONE [Concomitant]
     Route: 048
     Dates: start: 20100827, end: 20100917
  13. PREDNISOLONE [Concomitant]
     Route: 048
     Dates: start: 20101202, end: 20101224
  14. ACTEMRA [Suspect]
     Indication: STILL'S DISEASE ADULT ONSET
     Route: 042
     Dates: start: 20100810, end: 20101224
  15. METHOTREXATE [Concomitant]
     Route: 048
  16. LOXONIN [Concomitant]
     Route: 048
  17. METHOTREXATE [Concomitant]
     Route: 048
  18. PREDNISOLONE [Concomitant]
     Route: 048
     Dates: start: 20100918, end: 20101006
  19. PREDNISOLONE [Concomitant]
     Route: 048
     Dates: start: 20101007, end: 20101020
  20. PREDNISOLONE [Concomitant]
     Route: 048
     Dates: start: 20101104, end: 20101201

REACTIONS (2)
  - SUBCUTANEOUS HAEMATOMA [None]
  - DRUG ERUPTION [None]
